FAERS Safety Report 11987614 (Version 1)
Quarter: 2016Q1

REPORT INFORMATION
  Report Type: Spontaneous
  Country: CA (occurrence: CA)
  Receive Date: 20160202
  Receipt Date: 20160202
  Transmission Date: 20160526
  Serious: Yes (Other)
  Sender: FDA-Public Use
  Company Number: CA-ROCHE-1704019

PATIENT
  Age: 43 Year
  Sex: Female
  Weight: 86.26 kg

DRUGS (1)
  1. ACTEMRA [Suspect]
     Active Substance: TOCILIZUMAB
     Indication: RHEUMATOID ARTHRITIS
     Dosage: 1 DOSAGE FORM EVERY 30 DAYS FOR 32 DAYS
     Route: 065

REACTIONS (1)
  - Intraocular pressure increased [Unknown]
